FAERS Safety Report 4800991-0 (Version None)
Quarter: 2005Q4

REPORT INFORMATION
  Report Type: 
  Country: None (occurrence: None)
  Receive Date: 20051017
  Receipt Date: 20051005
  Transmission Date: 20060501
  Serious: Yes (Life-Threatening, Hospitalization)
  Sender: FDA-Public Use
  Company Number: NO-MERCK-0510NOR00012

PATIENT
  Age: 34 Year
  Sex: Female

DRUGS (5)
  1. MODURETIC 5-50 [Suspect]
     Route: 048
  2. METHADONE HYDROCHLORIDE [Suspect]
     Route: 065
  3. MIRTAZAPINE [Suspect]
     Route: 048
  4. ZOPICLONE [Suspect]
     Route: 065
  5. ZOLPIDEM TARTRATE [Suspect]
     Route: 065

REACTIONS (1)
  - CARDIAC ARREST [None]
